FAERS Safety Report 15418946 (Version 2)
Quarter: 2018Q4

REPORT INFORMATION
  Report Type: Report from Study
  Country: AU (occurrence: AU)
  Receive Date: 20180924
  Receipt Date: 20181115
  Transmission Date: 20190204
  Serious: Yes (Hospitalization, Other)
  Sender: FDA-Public Use
  Company Number: AU-MYLANLABS-2018M1055526

PATIENT
  Age: 38 Year
  Sex: Male

DRUGS (2)
  1. CLOZARIL [Suspect]
     Active Substance: CLOZAPINE
     Dosage: 200 UNK, UNK
     Dates: start: 2018
  2. CLOZARIL [Suspect]
     Active Substance: CLOZAPINE
     Indication: SCHIZOPHRENIA
     Dosage: 350 MG, UNK
     Route: 048
     Dates: start: 20170918

REACTIONS (10)
  - Sleep apnoea syndrome [Unknown]
  - White blood cell count increased [Unknown]
  - Oedema peripheral [Unknown]
  - Pickwickian syndrome [Unknown]
  - Neutrophil count increased [Unknown]
  - Antipsychotic drug level increased [Unknown]
  - Cardiac dysfunction [Unknown]
  - Dyspnoea [Unknown]
  - Pulmonary embolism [Unknown]
  - Obesity [Unknown]

NARRATIVE: CASE EVENT DATE: 20180713
